FAERS Safety Report 6418981-3 (Version None)
Quarter: 2009Q4

REPORT INFORMATION
  Report Type: 
  Country: None (occurrence: None)
  Receive Date: 20091026
  Receipt Date: 20091019
  Transmission Date: 20100525
  Serious: Yes (Other)
  Sender: FDA-Public Use
  Company Number: 2009SU0230

PATIENT
  Age: 60 Year
  Sex: Female
  Weight: 48.5349 kg

DRUGS (4)
  1. SULAR [Suspect]
     Indication: HYPERTENSION
     Dosage: 8.5 MG, DAILY
     Dates: start: 20090101
  2. ATENOLOL [Concomitant]
  3. ACETYLSALICYLIC ACID [Concomitant]
  4. XANAX [Concomitant]

REACTIONS (4)
  - BLOOD PRESSURE INADEQUATELY CONTROLLED [None]
  - PERSONALITY CHANGE [None]
  - TRANSIENT ISCHAEMIC ATTACK [None]
  - VERTIGO [None]
